FAERS Safety Report 4449644-1 (Version None)
Quarter: 2004Q3

REPORT INFORMATION
  Report Type: 
  Country: None (occurrence: None)
  Receive Date: 20040913
  Receipt Date: 20040913
  Transmission Date: 20050211
  Serious: Yes (Life-Threatening)
  Sender: FDA-Public Use
  Company Number: None

PATIENT
  Sex: Female
  Weight: 102.0593 kg

DRUGS (1)
  1. LISINOPRIL [Suspect]
     Indication: HYPERCHOLESTEROLAEMIA
     Dosage: 10 MG QD ORAL
     Route: 048
     Dates: start: 20040825, end: 20040911

REACTIONS (3)
  - CONDITION AGGRAVATED [None]
  - LUNG DISORDER [None]
  - MEDICATION ERROR [None]
